FAERS Safety Report 4715275-9 (Version None)
Quarter: 2005Q3

REPORT INFORMATION
  Report Type: 
  Country: None (occurrence: None)
  Receive Date: 20050715
  Receipt Date: 20050707
  Transmission Date: 20060218
  Serious: Yes (Hospitalization)
  Sender: FDA-Public Use
  Company Number: 2005UW10136

PATIENT
  Age: 65 Year
  Sex: Female
  Weight: 101.8 kg

DRUGS (2)
  1. ATENOLOL [Suspect]
     Indication: ILL-DEFINED DISORDER
     Route: 048
     Dates: start: 19900101, end: 20050311
  2. NORVASC [Suspect]
     Indication: ILL-DEFINED DISORDER
     Route: 048
     Dates: start: 19900101, end: 20050311

REACTIONS (1)
  - CORONARY ARTERY DISEASE [None]
